FAERS Safety Report 9183995 (Version 4)
Quarter: 2013Q3

REPORT INFORMATION
  Report Type: Spontaneous
  Country: US (occurrence: US)
  Receive Date: 20130322
  Receipt Date: 20130718
  Transmission Date: 20140515
  Serious: Yes (Hospitalization, Other)
  Sender: FDA-Public Use
  Company Number: US-TEVA-392691USA

PATIENT
  Age: 50 Year
  Sex: Female

DRUGS (11)
  1. COPAXONE [Suspect]
     Indication: MULTIPLE SCLEROSIS
     Dates: start: 20070727
  2. FLONASE [Concomitant]
  3. LEXAPRO [Concomitant]
  4. MICARDIS [Concomitant]
  5. CARISOPRODOL [Concomitant]
  6. GABAPENTIN [Concomitant]
  7. ENALAPRIL [Concomitant]
  8. SYNTHROID [Concomitant]
  9. FLUOXETINE [Concomitant]
  10. HYDROCO/APAP [Concomitant]
     Dosage: 5-500MG
  11. OMEPRAZOLE [Concomitant]

REACTIONS (2)
  - Breast cancer [Not Recovered/Not Resolved]
  - Mastectomy [Unknown]
